FAERS Safety Report 16842147 (Version 1)
Quarter: 2019Q3

REPORT INFORMATION
  Report Type: Spontaneous
  Country: US (occurrence: US)
  Receive Date: 20190923
  Receipt Date: 20190923
  Transmission Date: 20191005
  Serious: Yes (Other)
  Sender: FDA-Public Use
  Company Number: US-AUROBINDO-AUR-APL-2019-058760

PATIENT
  Age: 17 Year
  Sex: Female
  Weight: 61 kg

DRUGS (2)
  1. METHOTREXATE. [Suspect]
     Active Substance: METHOTREXATE
     Indication: PRODUCT USED FOR UNKNOWN INDICATION
     Dosage: UNK,TOTAL,INTENTIONALLY INGESTING 30-40 TABLETS OF UNKNOWN DOSE MTX
     Route: 048
  2. IBUPROFEN 200 MG TABLETS USP (OTC) [Suspect]
     Active Substance: IBUPROFEN
     Indication: PRODUCT USED FOR UNKNOWN INDICATION
     Dosage: 40 DOSAGE FORM,TOTAL
     Route: 048

REACTIONS (7)
  - Transaminases increased [Unknown]
  - Nausea [Recovered/Resolved]
  - Intentional overdose [Unknown]
  - Vomiting [Recovered/Resolved]
  - Toxicity to various agents [Unknown]
  - Lethargy [Recovered/Resolved]
  - White blood cell count decreased [Unknown]
